FAERS Safety Report 8000391-9 (Version None)
Quarter: 2011Q4

REPORT INFORMATION
  Report Type: 
  Country: None (occurrence: None)
  Receive Date: 20111222
  Receipt Date: 20111213
  Transmission Date: 20120403
  Serious: Yes (Death)
  Sender: FDA-Public Use
  Company Number: JP-GENZYME-THYM-1002987

PATIENT
  Sex: Female
  Weight: 43 kg

DRUGS (12)
  1. TACROLIMUS [Concomitant]
     Indication: BONE MARROW CONDITIONING REGIMEN
     Dosage: UNK
     Route: 065
     Dates: start: 20090225, end: 20090417
  2. TACROLIMUS [Concomitant]
     Indication: ACUTE GRAFT VERSUS HOST DISEASE
  3. CORTICOSTEROIDS [Concomitant]
     Indication: ACUTE GRAFT VERSUS HOST DISEASE
     Dosage: UNK
     Route: 065
     Dates: start: 20090409, end: 20090529
  4. MICAFUNGIN SODIUM [Concomitant]
     Indication: INFECTION PROPHYLAXIS
     Dosage: UNK
     Route: 065
     Dates: start: 20090421, end: 20090529
  5. THYMOGLOBULIN [Suspect]
     Indication: ACUTE GRAFT VERSUS HOST DISEASE
     Dosage: 50 MG, QD
     Route: 042
     Dates: start: 20090423, end: 20090428
  6. MELPHALAN HYDROCHLORIDE [Concomitant]
     Indication: BONE MARROW CONDITIONING REGIMEN
     Dosage: UNK
     Route: 065
     Dates: start: 20090327, end: 20090328
  7. CEFEPIME HYDROCHLORIDE [Concomitant]
     Indication: INFECTION PROPHYLAXIS
     Dosage: UNK
     Route: 065
     Dates: start: 20090423, end: 20090510
  8. DOPAMINE HCL [Concomitant]
     Indication: PROPHYLAXIS
     Dosage: UNK
     Route: 065
     Dates: start: 20090404, end: 20090529
  9. FLUDARABINE PHOSPHATE [Concomitant]
     Indication: BONE MARROW CONDITIONING REGIMEN
     Dosage: UNK
     Route: 065
     Dates: start: 20090325, end: 20090330
  10. MYCOPHENOLATE MOFETIL [Concomitant]
     Indication: BONE MARROW CONDITIONING REGIMEN
     Dosage: UNK
     Route: 065
     Dates: start: 20090331, end: 20090419
  11. MYCOPHENOLATE MOFETIL [Concomitant]
     Indication: ACUTE GRAFT VERSUS HOST DISEASE
  12. LENOGRASTIM [Concomitant]
     Indication: INFECTION PROPHYLAXIS
     Dosage: UNK
     Route: 065
     Dates: start: 20090423, end: 20090528

REACTIONS (3)
  - CYTOMEGALOVIRUS TEST POSITIVE [None]
  - GRAFT VERSUS HOST DISEASE [None]
  - LIVER DISORDER [None]
